FAERS Safety Report 5764376-5 (Version None)
Quarter: 2008Q2

REPORT INFORMATION
  Report Type: 
  Country: None (occurrence: None)
  Receive Date: 20080610
  Receipt Date: 20080513
  Transmission Date: 20081010
  Serious: No
  Sender: FDA-Public Use
  Company Number: US-BOEHRINGER INGELHEIM GMBH, GERMANY-2008-BP-07545BP

PATIENT
  Age: 78 Year
  Sex: Female

DRUGS (7)
  1. SPIRIVA [Suspect]
     Indication: CHRONIC OBSTRUCTIVE PULMONARY DISEASE
     Route: 055
     Dates: start: 20080512, end: 20080512
  2. SPIRIVA [Suspect]
     Indication: ASTHMA
  3. PROTONIX [Concomitant]
  4. ZYRTEC [Concomitant]
  5. VERELAN [Concomitant]
  6. PHENERGAN [Concomitant]
  7. PALGIC [Concomitant]

REACTIONS (4)
  - HEADACHE [None]
  - MALAISE [None]
  - NAUSEA [None]
  - PRURITUS [None]
